FAERS Safety Report 21247404 (Version 3)
Quarter: 2022Q4

REPORT INFORMATION
  Report Type: Report from Study
  Country: CA (occurrence: CA)
  Receive Date: 20220824
  Receipt Date: 20221209
  Transmission Date: 20230112
  Serious: Yes (Other)
  Sender: FDA-Public Use
  Company Number: CA-NOVARTISPH-NVSC2022CA184766

PATIENT
  Age: 70 Year
  Sex: Female

DRUGS (4)
  1. ERELZI [Suspect]
     Active Substance: ETANERCEPT-SZZS
     Indication: Rheumatoid arthritis
     Dosage: 50 MG, QW
     Route: 058
     Dates: start: 20220510
  2. IMURAN [Concomitant]
     Active Substance: AZATHIOPRINE
     Indication: Product used for unknown indication
     Dosage: UNK
     Route: 065
  3. RITUXAN [Concomitant]
     Active Substance: RITUXIMAB
     Indication: Product used for unknown indication
     Dosage: UNK
     Route: 065
     Dates: start: 200902
  4. SIMPONI [Concomitant]
     Active Substance: GOLIMUMAB
     Indication: Product used for unknown indication
     Dosage: UNK
     Route: 058
     Dates: start: 201505

REACTIONS (10)
  - Lymphatic disorder [Unknown]
  - Peripheral swelling [Unknown]
  - Sluggishness [Unknown]
  - Hypoacusis [Unknown]
  - Balance disorder [Unknown]
  - Abdominal pain upper [Unknown]
  - Blood pressure decreased [Unknown]
  - Dizziness [Unknown]
  - Coordination abnormal [Unknown]
  - Nausea [Unknown]
